FAERS Safety Report 24372322 (Version 1)
Quarter: 2024Q3

REPORT INFORMATION
  Report Type: Spontaneous
  Country: GB (occurrence: GB)
  Receive Date: 20240927
  Receipt Date: 20240927
  Transmission Date: 20241017
  Serious: Yes (Other)
  Sender: CELLTRION
  Company Number: GB-CELLTRION INC.-2024GB020890

PATIENT

DRUGS (2)
  1. INFLIXIMAB [Suspect]
     Active Substance: INFLIXIMAB
     Indication: Crohn^s disease
     Dosage: REMSIMA (INFLIXIMAB) 120MG PRE FILLED PEN
     Route: 058
     Dates: start: 202407
  2. INFLIXIMAB [Suspect]
     Active Substance: INFLIXIMAB
     Dosage: REMSIMA (INFLIXIMAB) 120MG PRE FILLED PEN
     Route: 058
     Dates: start: 202408

REACTIONS (5)
  - Ectopic pregnancy [Unknown]
  - Lower respiratory tract infection [Unknown]
  - Productive cough [Unknown]
  - Maternal exposure timing unspecified [Unknown]
  - Therapy interrupted [Unknown]
